FAERS Safety Report 18441796 (Version 2)
Quarter: 2020Q4

REPORT INFORMATION
  Report Type: Report from Study
  Country: US (occurrence: US)
  Receive Date: 20201029
  Receipt Date: 20201123
  Transmission Date: 20210114
  Serious: Yes (Other)
  Sender: FDA-Public Use
  Company Number: NVSC2020US285995

PATIENT
  Sex: Female

DRUGS (3)
  1. MEXILETINE [Suspect]
     Active Substance: MEXILETINE
     Indication: ARRHYTHMIA PROPHYLAXIS
     Dosage: UNK
     Route: 065
  2. ENTRESTO [Suspect]
     Active Substance: SACUBITRIL\VALSARTAN
     Dosage: UNK
     Route: 065
  3. ENTRESTO [Suspect]
     Active Substance: SACUBITRIL\VALSARTAN
     Indication: PRODUCT USED FOR UNKNOWN INDICATION
     Dosage: UNK (ONE YEAR AGO)
     Route: 065

REACTIONS (11)
  - Fatigue [Unknown]
  - Chest pain [Unknown]
  - Throat clearing [Unknown]
  - Expired product administered [Not Recovered/Not Resolved]
  - Blindness [Unknown]
  - Hunger [Unknown]
  - Headache [Unknown]
  - Cough [Unknown]
  - Dyspnoea [Unknown]
  - Inappropriate schedule of product administration [Recovered/Resolved]
  - Cardiac dysfunction [Not Recovered/Not Resolved]
